FAERS Safety Report 9349696 (Version 2)
Quarter: 2013Q4

REPORT INFORMATION
  Report Type: Report from Study
  Country: JP (occurrence: JP)
  Receive Date: 20130614
  Receipt Date: 20131028
  Transmission Date: 20140711
  Serious: Yes (Other)
  Sender: FDA-Public Use
  Company Number: JP-009507513-1305JPN007468

PATIENT
  Age: 31 Year
  Sex: Female

DRUGS (7)
  1. GANIRELIX ACETATE [Suspect]
     Indication: PREVENTION OF PREMATURE OVULATION
     Dosage: 0.25 MG, QD
     Route: 058
     Dates: start: 20110217, end: 20110218
  2. FOLLITROPIN BETA [Concomitant]
     Indication: IN VITRO FERTILISATION
     Dosage: 450 (UNDER 1000 UNIT), QD
     Route: 058
     Dates: start: 20110211, end: 20110212
  3. FOLLITROPIN BETA [Concomitant]
     Dosage: 300 (UNDER 1000 UNIT), QD
     Route: 058
     Dates: start: 20110213, end: 20110216
  4. GONADOTROPIN, CHORIONIC [Concomitant]
     Indication: IN VITRO FERTILISATION
     Dosage: 300(UNDER 1000UNIT), QD
     Route: 030
     Dates: start: 20110217, end: 20110219
  5. GONADOTROPIN, CHORIONIC [Concomitant]
     Indication: OVULATION DISORDER
     Dosage: 5 (THOUSAND-MILLIN UNIT), QD
     Route: 030
     Dates: start: 20110219, end: 20110219
  6. LUTORAL (CHLORMADINONE ACETATE) [Concomitant]
     Indication: IN VITRO FERTILISATION
     Dosage: 12 MG, QD
     Route: 048
     Dates: start: 20110226, end: 20110310
  7. PROGESTONE DEPOT [Concomitant]
     Indication: IN VITRO FERTILISATION
     Dosage: 125 MG, QD
     Route: 030
     Dates: start: 20110226, end: 20110226

REACTIONS (1)
  - Foetal death [Recovered/Resolved]
